FAERS Safety Report 21995077 (Version 2)
Quarter: 2023Q1

REPORT INFORMATION
  Report Type: Report from Study
  Country: IE (occurrence: IE)
  Receive Date: 20230215
  Receipt Date: 20230302
  Transmission Date: 20230417
  Serious: No
  Sender: FDA-Public Use
  Company Number: IE-JNJFOC-20230208211

PATIENT
  Age: 48 Year
  Sex: Female

DRUGS (3)
  1. STELARA [Suspect]
     Active Substance: USTEKINUMAB
     Indication: Henoch-Schonlein purpura
     Route: 040
     Dates: start: 202212
  2. STELARA [Suspect]
     Active Substance: USTEKINUMAB
     Dosage: STRENGTH: 90.00 MG/ML
     Route: 058
     Dates: start: 20230202
  3. DELTACORTRIL [Concomitant]
     Active Substance: PREDNISOLONE
     Route: 050

REACTIONS (3)
  - Fatigue [Recovered/Resolved]
  - Device deployment issue [Unknown]
  - Off label use [Unknown]

NARRATIVE: CASE EVENT DATE: 20230202
